FAERS Safety Report 8044344-3 (Version None)
Quarter: 2012Q1

REPORT INFORMATION
  Report Type: 
  Country: None (occurrence: None)
  Receive Date: 20120111
  Receipt Date: 20120111
  Transmission Date: 20120608
  Serious: Yes (Other)
  Sender: FDA-Public Use
  Company Number: None

PATIENT
  Age: 60 Year
  Sex: Male

DRUGS (10)
  1. REVLIMID [Suspect]
     Indication: MULTIPLE MYELOMA
     Dosage: 10MG QOD ORALLY
     Route: 048
     Dates: start: 20100901, end: 20120101
  2. ATIVAN [Concomitant]
  3. LEVITRA [Concomitant]
  4. LOPRESSOR [Concomitant]
  5. ZOVIRAX [Concomitant]
  6. PRILOSEC [Concomitant]
  7. HYTRIN [Concomitant]
  8. VITAMIN D [Concomitant]
  9. NEURONTIN [Concomitant]
  10. TESSALON [Concomitant]

REACTIONS (4)
  - RENAL FAILURE [None]
  - HYPERCALCAEMIA [None]
  - HAEMODIALYSIS [None]
  - MUSCLE SPASMS [None]
